FAERS Safety Report 11741678 (Version 1)
Quarter: 2015Q4

REPORT INFORMATION
  Report Type: Spontaneous
  Country: US (occurrence: None)
  Receive Date: 20151113
  Receipt Date: 20151113
  Transmission Date: 20160304
  Serious: Yes (Other)
  Sender: FDA-Public Use
  Company Number: None

PATIENT
  Sex: Female

DRUGS (2)
  1. ROC MULTI CORREXION 5 IN 1 RESTORING NIGHT CREAM [Suspect]
     Active Substance: COSMETICS
     Route: 061
  2. ROC MULTI CORREXION 5 IN 1 MOISTURIZER SUNSCREEN BROAD SPECTRUM SPF30 [Suspect]
     Active Substance: AVOBENZONE\HOMOSALATE\OCTISALATE\OCTOCRYLENE
     Route: 061

REACTIONS (3)
  - Abortion spontaneous [None]
  - Pregnancy [None]
  - Maternal exposure during pregnancy [None]
